FAERS Safety Report 14033372 (Version 1)
Quarter: 2017Q4

REPORT INFORMATION
  Report Type: Spontaneous
  Country: US (occurrence: US)
  Receive Date: 20171002
  Receipt Date: 20171002
  Transmission Date: 20180321
  Serious: No
  Sender: FDA-Public Use
  Company Number: US-JAZZ-2017-US-010465

PATIENT
  Sex: Female

DRUGS (52)
  1. RECLAST [Concomitant]
     Active Substance: ZOLEDRONIC ACID
  2. FENTANYL. [Concomitant]
     Active Substance: FENTANYL
  3. CIPRO [Concomitant]
     Active Substance: CIPROFLOXACIN HYDROCHLORIDE
  4. MORPHINE SULF [Concomitant]
     Active Substance: MORPHINE SULFATE
  5. LIDOCAINE. [Concomitant]
     Active Substance: LIDOCAINE
  6. IBUPROFEN                          /00109205/ [Concomitant]
     Active Substance: IBUPROFEN
  7. ZYRTEC-D [Concomitant]
     Active Substance: CETIRIZINE HYDROCHLORIDE\PSEUDOEPHEDRINE HYDROCHLORIDE
  8. FLONASE                            /00908302/PYRIDIUM [Concomitant]
  9. ZOLOFT [Concomitant]
     Active Substance: SERTRALINE HYDROCHLORIDE
  10. ELMIRON [Concomitant]
     Active Substance: PENTOSAN POLYSULFATE SODIUM
  11. DEXAMETHASONE. [Concomitant]
     Active Substance: DEXAMETHASONE
  12. XYLOCAINE [Concomitant]
     Active Substance: LIDOCAINE HYDROCHLORIDE
  13. RAPAFLO [Concomitant]
     Active Substance: SILODOSIN
  14. EXCEDRIN EXTRA STRENGTH [Concomitant]
     Active Substance: ACETAMINOPHEN\ASPIRIN\CAFFEINE
  15. NASACORT ALLERGY 24HR [Concomitant]
     Active Substance: TRIAMCINOLONE ACETONIDE
  16. ESTRACE [Concomitant]
     Active Substance: ESTRADIOL
  17. PROPOFOL. [Concomitant]
     Active Substance: PROPOFOL
  18. ROCURONIUM [Concomitant]
     Active Substance: ROCURONIUM BROMIDE
  19. EVISTA [Concomitant]
     Active Substance: RALOXIFENE HYDROCHLORIDE
  20. FISH OIL CONCENTRATE [Concomitant]
     Active Substance: FISH OIL
  21. ZYRTEC [Concomitant]
     Active Substance: CETIRIZINE HYDROCHLORIDE
  22. SUCCINYLCHOLIN [Concomitant]
  23. BETHANECHOL [Concomitant]
     Active Substance: BETHANECHOL
  24. ONDANSETRON HCL [Concomitant]
     Active Substance: ONDANSETRON HYDROCHLORIDE
  25. AROMASIN [Concomitant]
     Active Substance: EXEMESTANE
  26. SOMA [Concomitant]
     Active Substance: CARISOPRODOL
  27. TOPAMAX [Concomitant]
     Active Substance: TOPIRAMATE
  28. XYREM [Suspect]
     Active Substance: SODIUM OXYBATE
     Indication: NARCOLEPSY
     Dosage: 4.5G, BID
     Route: 048
     Dates: start: 200902
  29. PROMETHAZINE [Concomitant]
     Active Substance: PROMETHAZINE\PROMETHAZINE HYDROCHLORIDE
  30. MIDAZOLAM HCL [Concomitant]
     Active Substance: MIDAZOLAM HYDROCHLORIDE
  31. PERCOCET [Concomitant]
     Active Substance: ACETAMINOPHEN\OXYCODONE HYDROCHLORIDE
  32. VISTARIL                           /00058402/ [Concomitant]
     Active Substance: HYDROXYZINE HYDROCHLORIDE
  33. IMITREX [Concomitant]
     Active Substance: SUMATRIPTAN SUCCINATE
  34. CALCARB [Concomitant]
  35. SYSTANE BALANCE [Concomitant]
     Active Substance: PROPYLENE GLYCOL
  36. CREON [Concomitant]
     Active Substance: PANCRELIPASE AMYLASE\PANCRELIPASE LIPASE\PANCRELIPASE PROTEASE
  37. METRONIDAZOLE. [Concomitant]
     Active Substance: METRONIDAZOLE
  38. AMBIEN [Concomitant]
     Active Substance: ZOLPIDEM TARTRATE
  39. MAXALT [Concomitant]
     Active Substance: RIZATRIPTAN BENZOATE
  40. OMEPRAZOLE. [Concomitant]
     Active Substance: OMEPRAZOLE
  41. XYREM [Suspect]
     Active Substance: SODIUM OXYBATE
     Indication: CATAPLEXY
  42. PYRIDIUM [Concomitant]
     Active Substance: PHENAZOPYRIDINE
  43. MIRALAX [Concomitant]
     Active Substance: POLYETHYLENE GLYCOL 3350
  44. ZOFRAN [Concomitant]
     Active Substance: ONDANSETRON HYDROCHLORIDE
  45. SYNTHROID [Concomitant]
     Active Substance: LEVOTHYROXINE SODIUM
  46. ARIMIDEX [Concomitant]
     Active Substance: ANASTROZOLE
  47. RITALIN [Concomitant]
     Active Substance: METHYLPHENIDATE HYDROCHLORIDE
  48. TRIMETHOPRIM. [Concomitant]
     Active Substance: TRIMETHOPRIM
  49. EFFEXOR [Concomitant]
     Active Substance: VENLAFAXINE HYDROCHLORIDE
  50. DEXAMETHASONE ACETATE [Concomitant]
     Active Substance: DEXAMETHASONE ACETATE
  51. STOOL SOFTENER (DOCUSATE) [Concomitant]
     Active Substance: DOCUSATE
  52. PROVIGIL [Concomitant]
     Active Substance: MODAFINIL

REACTIONS (5)
  - Bladder pain [Not Recovered/Not Resolved]
  - Nausea [Unknown]
  - Vomiting [Unknown]
  - Inappropriate schedule of drug administration [Unknown]
  - Extra dose administered [Unknown]
